FAERS Safety Report 8530650 (Version 4)
Quarter: 2013Q2

REPORT INFORMATION
  Report Type: Spontaneous
  Country: CA (occurrence: CA)
  Receive Date: 20120425
  Receipt Date: 20130628
  Transmission Date: 20140414
  Serious: Yes (Other)
  Sender: FDA-Public Use
  Company Number: CA-ROCHE-1061859

PATIENT
  Age: 55 Year
  Sex: Female

DRUGS (9)
  1. XOLAIR [Suspect]
     Indication: ASTHMA
     Route: 058
     Dates: start: 20120413
  2. XOLAIR [Suspect]
     Route: 065
     Dates: start: 20121012
  3. XOLAIR [Suspect]
     Route: 065
     Dates: start: 20130104
  4. XOLAIR [Suspect]
     Route: 065
     Dates: start: 20130621
  5. VENTOLIN [Concomitant]
  6. ALVESCO [Concomitant]
  7. ADVAIR [Concomitant]
  8. SPIRIVA [Concomitant]
  9. SINGULAIR [Concomitant]

REACTIONS (6)
  - Hypersensitivity [Recovered/Resolved]
  - Dizziness [Recovered/Resolved]
  - Paraesthesia [Recovered/Resolved]
  - Feeling hot [Recovered/Resolved]
  - Blood pressure fluctuation [Not Recovered/Not Resolved]
  - Heart rate increased [Not Recovered/Not Resolved]
